FAERS Safety Report 12244874 (Version 1)
Quarter: 2016Q2

REPORT INFORMATION
  Report Type: Spontaneous
  Country: US (occurrence: US)
  Receive Date: 20160407
  Receipt Date: 20160407
  Transmission Date: 20160815
  Serious: Yes (Hospitalization)
  Sender: FDA-Public Use
  Company Number: US-HOSPIRA-3238824

PATIENT
  Age: 56 Year
  Sex: Male

DRUGS (16)
  1. FENTANYL. [Suspect]
     Active Substance: FENTANYL
     Indication: AMPUTATION STUMP PAIN
     Dosage: TOTAL 24 HOUR DOSE: 288 MCG
  2. MORPHINE [Suspect]
     Active Substance: MORPHINE
     Indication: NECK PAIN
     Route: 048
  3. MORPHINE SULPHATE [Suspect]
     Active Substance: MORPHINE SULFATE
     Indication: AMPUTATION STUMP PAIN
     Dosage: PCA
  4. FENTANYL. [Suspect]
     Active Substance: FENTANYL
     Indication: AMPUTATION STUMP PAIN
     Dosage: EVERY 3-5 DAYS; TOTAL 75 MCG/HR
  5. FENTANYL. [Suspect]
     Active Substance: FENTANYL
     Indication: PHANTOM PAIN
     Dosage: TOTAL 24 HOUR DOSE: 288 MCG
  6. MORPHINE [Suspect]
     Active Substance: MORPHINE
     Indication: PAIN IN EXTREMITY
     Route: 048
  7. MORPHINE SULPHATE [Suspect]
     Active Substance: MORPHINE SULFATE
     Indication: PHANTOM PAIN
     Dosage: PCA
  8. HYDROMORPHONE [Suspect]
     Active Substance: HYDROMORPHONE
     Indication: AMPUTATION STUMP PAIN
     Route: 048
  9. HYDROMORPHONE [Suspect]
     Active Substance: HYDROMORPHONE
     Indication: PHANTOM PAIN
     Route: 048
  10. HYDROMORPHONE HYDROCHLORIDE. [Suspect]
     Active Substance: HYDROMORPHONE HYDROCHLORIDE
     Indication: AMPUTATION STUMP PAIN
     Dosage: PCA
     Route: 042
  11. FENTANYL CITRATE. [Suspect]
     Active Substance: FENTANYL CITRATE
     Indication: AMPUTATION STUMP PAIN
  12. NORCO [Suspect]
     Active Substance: ACETAMINOPHEN\HYDROCODONE BITARTRATE
     Indication: NECK PAIN
     Dosage: 6-7/DAY
  13. NORCO [Suspect]
     Active Substance: ACETAMINOPHEN\HYDROCODONE BITARTRATE
     Indication: PAIN IN EXTREMITY
     Dosage: 6-7/DAY
  14. FENTANYL. [Suspect]
     Active Substance: FENTANYL
     Indication: PHANTOM PAIN
     Dosage: EVERY 3-5 DAYS; TOTAL 75 MCG/HR
  15. HYDROMORPHONE HYDROCHLORIDE. [Suspect]
     Active Substance: HYDROMORPHONE HYDROCHLORIDE
     Indication: PHANTOM PAIN
     Dosage: PCA
     Route: 042
  16. FENTANYL CITRATE. [Suspect]
     Active Substance: FENTANYL CITRATE
     Indication: PHANTOM PAIN

REACTIONS (1)
  - Hyperaesthesia [Recovering/Resolving]
